FAERS Safety Report 7784974-7 (Version None)
Quarter: 2011Q3

REPORT INFORMATION
  Report Type: 
  Country: None (occurrence: None)
  Receive Date: 20110928
  Receipt Date: 20110614
  Transmission Date: 20111222
  Serious: Yes (Hospitalization)
  Sender: FDA-Public Use
  Company Number: PHEH2011US05189

PATIENT
  Sex: Female
  Weight: 30 kg

DRUGS (9)
  1. AZITHROMYCIN [Concomitant]
  2. CREON [Concomitant]
  3. MIRALAX [Concomitant]
  4. TOBI [Suspect]
     Dosage: 300 MG, BID
     Dates: start: 20100424
  5. PREDNISONE [Concomitant]
  6. ACETYLCYSTEINE [Concomitant]
  7. VITAMIN D [Concomitant]
  8. ALBUTEROL [Concomitant]
  9. MEPHYTON [Concomitant]

REACTIONS (5)
  - PANCREATITIS [None]
  - NAUSEA [None]
  - LUNG INFECTION [None]
  - ABDOMINAL PAIN UPPER [None]
  - WEIGHT DECREASED [None]
